FAERS Safety Report 19376684 (Version 1)
Quarter: 2021Q2

REPORT INFORMATION
  Report Type: Spontaneous
  Country: CA (occurrence: CA)
  Receive Date: 20210604
  Receipt Date: 20210604
  Transmission Date: 20210717
  Serious: Yes (Other)
  Sender: FDA-Public Use
  Company Number: NVSC2021CA119652

PATIENT
  Age: 70 Year
  Sex: Female

DRUGS (2)
  1. SANDOZ LANSOPRAZOLE [Suspect]
     Active Substance: LANSOPRAZOLE
     Indication: CREST SYNDROME
  2. SANDOZ LANSOPRAZOLE [Suspect]
     Active Substance: LANSOPRAZOLE
     Indication: OESOPHAGEAL MOTILITY DISORDER
     Dosage: 30 MG, QD (1 EVERY 1 DAYS)
     Route: 048

REACTIONS (2)
  - Gastrooesophageal reflux disease [Recovered/Resolved]
  - Condition aggravated [Recovered/Resolved]
